FAERS Safety Report 17273904 (Version 1)
Quarter: 2020Q1

REPORT INFORMATION
  Report Type: Spontaneous
  Country: US (occurrence: US)
  Receive Date: 20191226
  Receipt Date: 20191226
  Transmission Date: 20200409
  Serious: No
  Sender: FDA-Public Use
  Company Number: None

PATIENT
  Age: 60 Year
  Sex: Male

DRUGS (19)
  1. ANDROGEL [Concomitant]
     Active Substance: TESTOSTERONE
  2. GLIMEPIRIDE. [Concomitant]
     Active Substance: GLIMEPIRIDE
  3. RESPIRATONIC [Concomitant]
  4. TESTOSTERONE. [Concomitant]
     Active Substance: TESTOSTERONE
  5. FISH OIL [Concomitant]
     Active Substance: FISH OIL
  6. JARDIANCE [Concomitant]
     Active Substance: EMPAGLIFLOZIN
  7. HUMIRA [Suspect]
     Active Substance: ADALIMUMAB
     Indication: PSORIASIS
     Dosage: ?          OTHER FREQUENCY:EVERY 2 WEEKS;?
     Route: 058
     Dates: start: 20190412
  8. ATORVASTATIN [Concomitant]
     Active Substance: ATORVASTATIN
  9. COLON FORMUL [Concomitant]
  10. MULTIVITAMIN [Concomitant]
     Active Substance: VITAMINS
  11. VIAGRA [Concomitant]
     Active Substance: SILDENAFIL CITRATE
  12. METFORMIN [Concomitant]
     Active Substance: METFORMIN HYDROCHLORIDE
  13. HALOPERIDOL. [Concomitant]
     Active Substance: HALOPERIDOL
  14. MELOXICAM. [Concomitant]
     Active Substance: MELOXICAM
  15. SILDENAFIL. [Concomitant]
     Active Substance: SILDENAFIL
  16. ESCITALOPRAM [Concomitant]
     Active Substance: ESCITALOPRAM OXALATE
  17. GLUCOSAMINE [Concomitant]
     Active Substance: GLUCOSAMINE
  18. TADALAFIL. [Concomitant]
     Active Substance: TADALAFIL
  19. VIRTUSSIN [Concomitant]

REACTIONS (1)
  - Psoriasis [None]
